FAERS Safety Report 17931129 (Version 1)
Quarter: 2020Q2

REPORT INFORMATION
  Report Type: Spontaneous
  Country: NO (occurrence: NO)
  Receive Date: 20200623
  Receipt Date: 20200623
  Transmission Date: 20200714
  Serious: Yes (Hospitalization)
  Sender: FDA-Public Use
  Company Number: NVSC2020NO174255

PATIENT
  Age: 82 Year
  Sex: Female

DRUGS (3)
  1. MEKINIST [Suspect]
     Active Substance: TRAMETINIB DIMETHYL SULFOXIDE
     Indication: METASTATIC MALIGNANT MELANOMA
     Dosage: 50% DOSE
     Route: 065
     Dates: start: 20200501, end: 202005
  2. TAFINLAR [Suspect]
     Active Substance: DABRAFENIB MESYLATE
     Dosage: 50 MG, BID
     Route: 065
     Dates: start: 202005
  3. TAFINLAR [Suspect]
     Active Substance: DABRAFENIB MESYLATE
     Indication: METASTATIC MALIGNANT MELANOMA
     Dosage: 50% DOSE
     Route: 065
     Dates: start: 20200501

REACTIONS (7)
  - Dyspnoea [Unknown]
  - Fluid overload [Recovered/Resolved]
  - Renal function test abnormal [Recovered/Resolved]
  - Pyrexia [Unknown]
  - Tumour lysis syndrome [Unknown]
  - Chills [Unknown]
  - Blood electrolytes increased [Recovered/Resolved]

NARRATIVE: CASE EVENT DATE: 202005
